FAERS Safety Report 13970262 (Version 2)
Quarter: 2017Q3

REPORT INFORMATION
  Report Type: Report from Study
  Country: US (occurrence: US)
  Receive Date: 20170914
  Receipt Date: 20170927
  Transmission Date: 20171128
  Serious: Yes (Hospitalization)
  Sender: FDA-Public Use
  Company Number: US-PFIZER INC-2017242574

PATIENT
  Age: 59 Year
  Sex: Male

DRUGS (4)
  1. SUTENT [Suspect]
     Active Substance: SUNITINIB MALATE
     Dosage: 50 MG, 1X/DAY
     Route: 048
     Dates: start: 20170530, end: 20170614
  2. SUTENT [Suspect]
     Active Substance: SUNITINIB MALATE
     Dosage: 50 MG, 1X/DAY
     Route: 048
     Dates: start: 20170620, end: 2017
  3. SUTENT [Suspect]
     Active Substance: SUNITINIB MALATE
     Dosage: 50 MG, 1X/DAY
     Route: 048
     Dates: start: 20170530, end: 20170901
  4. SUTENT [Suspect]
     Active Substance: SUNITINIB MALATE
     Indication: RENAL CELL CARCINOMA
     Dosage: 50 MG, 1X/DAY
     Route: 048
     Dates: start: 20170520

REACTIONS (15)
  - Nausea [Unknown]
  - Fatigue [Recovering/Resolving]
  - Bleeding time prolonged [Unknown]
  - Neoplasm progression [Unknown]
  - Pruritus [Unknown]
  - Oral pain [Recovering/Resolving]
  - Flatulence [Unknown]
  - Stomatitis [Unknown]
  - Vomiting [Unknown]
  - Dehydration [Unknown]
  - Dysgeusia [Unknown]
  - Alopecia [Unknown]
  - Jaundice [Unknown]
  - Abdominal pain [Recovering/Resolving]
  - Diarrhoea [Recovering/Resolving]

NARRATIVE: CASE EVENT DATE: 2017
